FAERS Safety Report 5250667-3 (Version None)
Quarter: 2007Q1

REPORT INFORMATION
  Report Type: 
  Country: None (occurrence: None)
  Receive Date: 20070228
  Receipt Date: 20060614
  Transmission Date: 20070707
  Serious: No
  Sender: FDA-Public Use
  Company Number: US-GLAXOSMITHKLINE-A0608991A

PATIENT
  Sex: Female

DRUGS (2)
  1. LAMICTAL [Suspect]
     Indication: HEADACHE
     Dosage: 50MG PER DAY
     Route: 048
  2. PREDNISONE [Concomitant]

REACTIONS (2)
  - RASH [None]
  - SWOLLEN TONGUE [None]
